FAERS Safety Report 7677071-2 (Version None)
Quarter: 2011Q3

REPORT INFORMATION
  Report Type: 
  Country: None (occurrence: None)
  Receive Date: 20110811
  Receipt Date: 20110803
  Transmission Date: 20111222
  Serious: Yes (Other)
  Sender: FDA-Public Use
  Company Number: US-ROCHE-794813

PATIENT
  Sex: Female

DRUGS (1)
  1. ACCUTANE [Suspect]
     Route: 065
     Dates: start: 20020301, end: 20020901

REACTIONS (7)
  - NAUSEA [None]
  - FATIGUE [None]
  - ABDOMINAL PAIN [None]
  - DECREASED APPETITE [None]
  - IRRITABLE BOWEL SYNDROME [None]
  - DIARRHOEA [None]
  - COLITIS ULCERATIVE [None]
